FAERS Safety Report 8250559-1 (Version None)
Quarter: 2012Q2

REPORT INFORMATION
  Report Type: 
  Country: None (occurrence: None)
  Receive Date: 20120402
  Receipt Date: 20120322
  Transmission Date: 20120825
  Serious: Yes (Hospitalization)
  Sender: FDA-Public Use
  Company Number: GB-ROCHE-1051458

PATIENT
  Sex: Male
  Weight: 119 kg

DRUGS (2)
  1. METHOTREXATE [Concomitant]
  2. MABTHERA [Suspect]
     Indication: PRODUCT USED FOR UNKNOWN INDICATION
     Dosage: LAST DOSE PRIOR TO SAE 21/APRIL/2011
     Dates: start: 20090708

REACTIONS (1)
  - DIABETES MELLITUS [None]
